FAERS Safety Report 25895820 (Version 1)
Quarter: 2025Q4

REPORT INFORMATION
  Report Type: Report from Study
  Country: US (occurrence: US)
  Receive Date: 20251008
  Receipt Date: 20251008
  Transmission Date: 20260117
  Serious: Yes (Hospitalization)
  Sender: EISAI
  Company Number: US-Eisai-EC-2025-195373

PATIENT
  Age: 78 Year
  Sex: Female

DRUGS (4)
  1. LENVIMA [Suspect]
     Active Substance: LENVATINIB
     Indication: Thyroid cancer
     Dosage: PRESCRIPTION IN THE PHARMACY READS 8 MG ORALLY ONCE DAILY.
     Route: 048
     Dates: start: 20241205
  2. LENVIMA [Suspect]
     Active Substance: LENVATINIB
     Route: 048
     Dates: end: 20250501
  3. LENVIMA [Suspect]
     Active Substance: LENVATINIB
     Dosage: DOSE AND FREQUENCY: LENVIMA 8 MG BY MOUTH ONCE A DAY ALTERNATING WITH 10 MG BY MOUTH ONCE A DAY.
     Route: 048
     Dates: start: 20250502, end: 20250816
  4. LENVIMA [Suspect]
     Active Substance: LENVATINIB
     Dosage: DOSE AND FREQUENCY: LENVIMA 8 MG BY MOUTH ONCE A DAY ALTERNATING WITH 4 MG BY MOUTH ONCE A DAY.
     Route: 048

REACTIONS (2)
  - Colitis [Unknown]
  - Atrial fibrillation [Unknown]

NARRATIVE: CASE EVENT DATE: 20250101
